FAERS Safety Report 5755349-7 (Version None)
Quarter: 2008Q2

REPORT INFORMATION
  Report Type: 
  Country: None (occurrence: None)
  Receive Date: 20080529
  Receipt Date: 20080529
  Transmission Date: 20081010
  Serious: Yes (Life-Threatening)
  Sender: FDA-Public Use
  Company Number: None

PATIENT
  Sex: Female
  Weight: 120.6568 kg

DRUGS (1)
  1. OPANA ER [Suspect]

REACTIONS (6)
  - APNOEA [None]
  - ASTHENIA [None]
  - DEPRESSION [None]
  - LETHARGY [None]
  - OXYGEN SATURATION DECREASED [None]
  - PULSE ABNORMAL [None]
